FAERS Safety Report 9493340 (Version 2)
Quarter: 2013Q3

REPORT INFORMATION
  Report Type: Report from Study
  Country: GB (occurrence: GB)
  Receive Date: 20130902
  Receipt Date: 20130902
  Transmission Date: 20140515
  Serious: No
  Sender: FDA-Public Use
  Company Number: GB-JNJFOC-20130412947

PATIENT
  Sex: Female
  Weight: 88 kg

DRUGS (21)
  1. SIMPONI [Suspect]
     Indication: SERONEGATIVE ARTHRITIS
     Route: 058
     Dates: start: 201107, end: 201211
  2. SIMPONI [Suspect]
     Indication: SERONEGATIVE ARTHRITIS
     Route: 058
     Dates: start: 201301, end: 201301
  3. SIMPONI [Suspect]
     Indication: SERONEGATIVE ARTHRITIS
     Route: 058
     Dates: start: 201302
  4. SIMPONI [Suspect]
     Indication: SERONEGATIVE ARTHRITIS
     Route: 058
     Dates: start: 20130316, end: 20130321
  5. SIMPONI [Suspect]
     Indication: SERONEGATIVE ARTHRITIS
     Route: 058
     Dates: start: 2013, end: 201306
  6. SIMPONI [Suspect]
     Indication: PSORIATIC ARTHROPATHY
     Route: 058
     Dates: start: 201107, end: 201211
  7. SIMPONI [Suspect]
     Indication: PSORIATIC ARTHROPATHY
     Route: 058
     Dates: start: 201301, end: 201301
  8. SIMPONI [Suspect]
     Indication: PSORIATIC ARTHROPATHY
     Route: 058
     Dates: start: 201302
  9. SIMPONI [Suspect]
     Indication: PSORIATIC ARTHROPATHY
     Route: 058
     Dates: start: 20130316, end: 20130321
  10. SIMPONI [Suspect]
     Indication: PSORIATIC ARTHROPATHY
     Route: 058
     Dates: start: 2013, end: 201306
  11. ETANERCEPT [Suspect]
     Indication: PRODUCT USED FOR UNKNOWN INDICATION
     Route: 065
     Dates: start: 201105
  12. PREDNISOLONE [Suspect]
     Indication: SERONEGATIVE ARTHRITIS
     Dosage: 75 ^M^
     Route: 048
     Dates: start: 201209, end: 201301
  13. PREDNISOLONE [Suspect]
     Indication: SERONEGATIVE ARTHRITIS
     Route: 048
     Dates: start: 201203, end: 2012
  14. PREDNISOLONE [Suspect]
     Indication: SERONEGATIVE ARTHRITIS
     Route: 048
     Dates: start: 201106, end: 2012
  15. METHOTREXATE [Concomitant]
     Indication: ARTHRITIS
     Dosage: LONG TERM
     Route: 065
     Dates: end: 201301
  16. ALENDRONATE [Concomitant]
     Indication: OSTEOPOROSIS
     Dosage: LONG TERM
     Route: 065
  17. ADCAL D3 [Concomitant]
     Indication: OSTEOPOROSIS
     Dosage: LONG TERM
     Route: 065
  18. ZAPAIN [Concomitant]
     Route: 065
  19. AMITRIPTYLINE [Concomitant]
     Indication: PAIN
     Dosage: LONG TERM
     Route: 065
  20. VITAMIN B12 [Concomitant]
     Dosage: 162 (19.1)
     Route: 065
  21. DEPO-MEDRONE [Concomitant]
     Route: 030

REACTIONS (3)
  - White blood cell count decreased [Not Recovered/Not Resolved]
  - Neutrophil count decreased [Not Recovered/Not Resolved]
  - Drug ineffective [Unknown]
